FAERS Safety Report 8851656 (Version 1)
Quarter: 2012Q4

REPORT INFORMATION
  Report Type: Spontaneous
  Country: US (occurrence: None)
  Receive Date: 20121018
  Receipt Date: 20121018
  Transmission Date: 20130627
  Serious: Yes (Life-Threatening, Hospitalization)
  Sender: FDA-Public Use
  Company Number: None

PATIENT
  Age: 37 Year
  Sex: Female
  Weight: 58.97 kg

DRUGS (2)
  1. TRAMADOL [Suspect]
     Indication: DISLOCATED SHOULDER
     Dosage: 1 tab 4 times daily PRN
     Route: 048
     Dates: start: 20121006, end: 20121007
  2. TRAMADOL [Suspect]
     Indication: PAIN
     Dosage: 1 tab 4 times daily PRN
     Route: 048
     Dates: start: 20121006, end: 20121007

REACTIONS (10)
  - Grand mal convulsion [None]
  - Fall [None]
  - Periorbital contusion [None]
  - Laceration [None]
  - Joint dislocation [None]
  - Pulse pressure decreased [None]
  - Hypopnoea [None]
  - Myalgia [None]
  - Memory impairment [None]
  - Mobility decreased [None]
